FAERS Safety Report 10574989 (Version 2)
Quarter: 2014Q4

REPORT INFORMATION
  Report Type: Report from Study
  Country: JP (occurrence: JP)
  Receive Date: 20141111
  Receipt Date: 20141216
  Transmission Date: 20150529
  Serious: Yes (Other)
  Sender: FDA-Public Use
  Company Number: JP-MYLANLABS-2014M1009665

PATIENT

DRUGS (2)
  1. ASPIRIN                            /00002701/ [Suspect]
     Active Substance: ASPIRIN
     Indication: POST PROCEDURAL MYOCARDIAL INFARCTION
     Dosage: 100 MG, QD
     Route: 065
  2. MELOXICAM. [Suspect]
     Active Substance: MELOXICAM
     Indication: OSTEOARTHROPATHY
     Dosage: 5 MG, QD
     Route: 065

REACTIONS (2)
  - Intestinal diaphragm disease [Unknown]
  - Gastrointestinal haemorrhage [Unknown]
